FAERS Safety Report 9503992 (Version 1)
Quarter: 2013Q3

REPORT INFORMATION
  Report Type: Spontaneous
  Country: US (occurrence: None)
  Receive Date: 20130905
  Receipt Date: 20130905
  Transmission Date: 20140515
  Serious: Yes (Hospitalization, Disabling)
  Sender: FDA-Public Use
  Company Number: None

PATIENT
  Age: 25 Year
  Sex: Female
  Weight: 58.97 kg

DRUGS (5)
  1. YAZ (DROSPIRENONE + ETHINYL ESTRADIOL) [Suspect]
     Indication: ORAL CONTRACEPTION
     Dosage: 1 PILL  ONCE DAILY  BY MOUTH
     Route: 048
     Dates: start: 20130301, end: 20130813
  2. PRISTIQ [Concomitant]
  3. BUPROPION [Concomitant]
  4. SPIRONOLACTONE [Concomitant]
  5. XARELTO [Concomitant]

REACTIONS (3)
  - Deep vein thrombosis [None]
  - Pulmonary embolism [None]
  - Pulmonary infarction [None]
